FAERS Safety Report 22143110 (Version 1)
Quarter: 2023Q1

REPORT INFORMATION
  Report Type: Spontaneous
  Country: US (occurrence: US)
  Receive Date: 20230327
  Receipt Date: 20230327
  Transmission Date: 20230417
  Serious: No
  Sender: FDA-Public Use
  Company Number: US-Santen Inc-2023-USA-002278

PATIENT
  Age: 11 Year
  Sex: Male

DRUGS (1)
  1. VERKAZIA [Suspect]
     Active Substance: CYCLOSPORINE
     Dosage: THREE TIMES A DAY IN BOTH EYES
     Route: 047
     Dates: start: 2022

REACTIONS (2)
  - Off label use [Unknown]
  - Prescribed underdose [Unknown]
